FAERS Safety Report 6032551-0 (Version None)
Quarter: 2009Q1

REPORT INFORMATION
  Report Type: 
  Country: None (occurrence: None)
  Receive Date: 20090109
  Receipt Date: 20081229
  Transmission Date: 20090719
  Serious: Yes (Other)
  Sender: FDA-Public Use
  Company Number: US-JNJCH-2009000109

PATIENT
  Age: 33 Month
  Sex: Male

DRUGS (1)
  1. CHILDREN'S SUDAFED PE COLD + COUGH [Suspect]
     Indication: COUGH
     Dosage: TEXT:UNSPECIFIED
     Route: 048

REACTIONS (5)
  - FEAR [None]
  - HALLUCINATION, VISUAL [None]
  - PANIC REACTION [None]
  - SLEEP DISORDER [None]
  - WRONG DRUG ADMINISTERED [None]
